FAERS Safety Report 7688942-5 (Version None)
Quarter: 2011Q3

REPORT INFORMATION
  Report Type: 
  Country: None (occurrence: None)
  Receive Date: 20110817
  Receipt Date: 20110811
  Transmission Date: 20111222
  Serious: Yes (Other)
  Sender: FDA-Public Use
  Company Number: PHHY2011CA73098

PATIENT
  Weight: 72.5 kg

DRUGS (3)
  1. CALCIUM CARBONATE [Concomitant]
     Dosage: 1500 MG, UNK
     Dates: start: 20060101
  2. ZOLEDRONOC ACID [Suspect]
     Indication: OSTEOPOROSIS
     Dosage: 5 MG, UNK
     Route: 042
     Dates: start: 20100324
  3. VITAMIN D [Concomitant]
     Dosage: 1800 U, UNK
     Dates: start: 20060101

REACTIONS (1)
  - ANKLE FRACTURE [None]
